FAERS Safety Report 24989656 (Version 1)
Quarter: 2025Q1

REPORT INFORMATION
  Report Type: Spontaneous
  Country: FR (occurrence: FR)
  Receive Date: 20250220
  Receipt Date: 20250220
  Transmission Date: 20250409
  Serious: Yes (Hospitalization)
  Sender: ACCORD
  Company Number: None

PATIENT
  Age: 79 Year
  Sex: Female
  Weight: 47 kg

DRUGS (2)
  1. QUETIAPINE [Suspect]
     Active Substance: QUETIAPINE
     Indication: Behaviour disorder
     Dosage: STRENGTH: 50 MG, 50MG 1 PER DAY THEN 2/DAY UNTIL 29-NOV-2024
     Dates: start: 20241129, end: 20241208
  2. QUETIAPINE [Suspect]
     Active Substance: QUETIAPINE
     Indication: Behaviour disorder
     Dosage: STRENGTH: 50 MG, 50MG 1 PER DAY THEN 2/DAY UNTIL 29-NOV-2024
     Dates: start: 20241119, end: 20241128

REACTIONS (1)
  - Pancytopenia [Recovered/Resolved]

NARRATIVE: CASE EVENT DATE: 20241202
